FAERS Safety Report 5875456-8 (Version None)
Quarter: 2008Q3

REPORT INFORMATION
  Report Type: 
  Country: None (occurrence: None)
  Receive Date: 20080909
  Receipt Date: 20080904
  Transmission Date: 20090109
  Serious: Yes (Other)
  Sender: FDA-Public Use
  Company Number: US-JNJCH-2008022823

PATIENT
  Age: 2 Year
  Sex: Female

DRUGS (1)
  1. BENADRYL ITCH STOPPING SPRAY [Suspect]
     Indication: DRUG USE FOR UNKNOWN INDICATION
     Dosage: TEXT:UNSPECIFIED
     Route: 047
     Dates: start: 20080903, end: 20080903

REACTIONS (3)
  - ACCIDENTAL EXPOSURE [None]
  - CONVULSION [None]
  - OCULAR HYPERAEMIA [None]
